FAERS Safety Report 7280605-3 (Version None)
Quarter: 2011Q1

REPORT INFORMATION
  Report Type: 
  Country: None (occurrence: None)
  Receive Date: 20110203
  Receipt Date: 20110203
  Transmission Date: 20110831
  Serious: Yes (Other)
  Sender: FDA-Public Use
  Company Number: None

PATIENT
  Sex: Male
  Weight: 87.0906 kg

DRUGS (1)
  1. SIMVASTATIN [Suspect]
     Indication: LOW DENSITY LIPOPROTEIN INCREASED
     Dosage: 20 MG 1 TAB PER TWO DAYS PO
     Route: 048
     Dates: start: 20110110, end: 20110119

REACTIONS (7)
  - FEAR [None]
  - BLOOD PRESSURE INCREASED [None]
  - SYNCOPE [None]
  - ASTHENIA [None]
  - PARAESTHESIA [None]
  - NO THERAPEUTIC RESPONSE [None]
  - PANIC ATTACK [None]
